FAERS Safety Report 23859139 (Version 2)
Quarter: 2024Q2

REPORT INFORMATION
  Report Type: Spontaneous
  Country: US (occurrence: US)
  Receive Date: 20240515
  Receipt Date: 20240627
  Transmission Date: 20240716
  Serious: No
  Sender: FDA-Public Use
  Company Number: US-GILEAD-2024-0672860

PATIENT
  Age: 56 Year
  Sex: Female

DRUGS (2)
  1. LENACAPAVIR [Suspect]
     Active Substance: LENACAPAVIR
     Indication: HIV infection
     Dosage: 2?1.5 ML INJECTIONS (EVERY SIX MONTHS)
     Route: 058
     Dates: start: 202312
  2. LENACAPAVIR [Suspect]
     Active Substance: LENACAPAVIR
     Dosage: 927MG SUBCUTANEOUS EVERY 6 MONTHS
     Route: 065
     Dates: start: 202311

REACTIONS (2)
  - Injection site nodule [Not Recovered/Not Resolved]
  - Nodule [Unknown]

NARRATIVE: CASE EVENT DATE: 20231201
